FAERS Safety Report 11317142 (Version 1)
Quarter: 2015Q3

REPORT INFORMATION
  Report Type: Spontaneous
  Country: US (occurrence: None)
  Receive Date: 20150727
  Receipt Date: 20150727
  Transmission Date: 20151125
  Serious: Yes (Disabling)
  Sender: FDA-Public Use
  Company Number: None

PATIENT
  Age: 68 Year
  Sex: Female

DRUGS (1)
  1. TOBRAMYCIN. [Suspect]
     Active Substance: TOBRAMYCIN
     Indication: URINARY TRACT INFECTION
     Route: 042
     Dates: start: 20150605, end: 20150610

REACTIONS (2)
  - Tinnitus [None]
  - Ototoxicity [None]

NARRATIVE: CASE EVENT DATE: 20150611
